FAERS Safety Report 7350239-0 (Version None)
Quarter: 2011Q1

REPORT INFORMATION
  Report Type: 
  Country: None (occurrence: None)
  Receive Date: 20110309
  Receipt Date: 20110309
  Transmission Date: 20110831
  Serious: No
  Sender: FDA-Public Use
  Company Number: None

PATIENT
  Sex: Male
  Weight: 99.5 kg

DRUGS (2)
  1. LAMOTRIGINE [Suspect]
     Indication: BIPOLAR DISORDER
     Dosage: LAMOTRIGINE 25MG TWICE DAILY ORAL
     Route: 048
     Dates: start: 20100318
  2. LAMOTRIGINE [Suspect]
     Indication: BIPOLAR DISORDER
     Dosage: LAMOTRIGINE 200MG DAILY ORAL
     Route: 048
     Dates: start: 20100407

REACTIONS (1)
  - STEVENS-JOHNSON SYNDROME [None]
